FAERS Safety Report 9413415 (Version 1)
Quarter: 2013Q3

REPORT INFORMATION
  Report Type: Spontaneous
  Country: JP (occurrence: None)
  Receive Date: 20130717
  Receipt Date: 20130717
  Transmission Date: 20140515
  Serious: Yes (Other)
  Sender: FDA-Public Use
  Company Number: 2009JP004431

PATIENT
  Age: 59 Year
  Sex: Female
  Weight: 57.8 kg

DRUGS (22)
  1. PROGRAF (TACROLIMUS) CAPSULE [Suspect]
     Indication: LUPUS NEPHRITIS
     Dosage: 2 MG, UNKNOWN /D, ORAL
     Route: 048
     Dates: start: 20080919
  2. PREDNISOLONE [Suspect]
     Indication: LUPUS NEPHRITIS
     Route: 048
  3. BLOPRESS [Concomitant]
  4. GASTER [Concomitant]
  5. LASIX (FUROSEMIDE) [Concomitant]
  6. ZYLORIC [Concomitant]
  7. LIPITOR (ATORVASTATIN CALCIUM) [Concomitant]
  8. FOSAMAC [Concomitant]
  9. ATELEC [Concomitant]
  10. CARDENALIN [Concomitant]
  11. CEFZON [Concomitant]
  12. BAKTAR [Concomitant]
  13. TAKEPRON (LANSOPRAZOLE) [Concomitant]
  14. CALCIUM CARBONATE [Concomitant]
  15. SSS [Concomitant]
  16. LEPETAN [Concomitant]
  17. COCARL [Concomitant]
  18. MOHRUS [Concomitant]
  19. CARBOCAIN [Concomitant]
  20. ANAPEINE [Concomitant]
  21. XYLOCAINE [Concomitant]
  22. SEISHOKU [Concomitant]

REACTIONS (7)
  - Intervertebral disc protrusion [None]
  - Hypertension [None]
  - Cystitis [None]
  - Blood glucose increased [None]
  - Bone density decreased [None]
  - Upper respiratory tract inflammation [None]
  - Enterocolitis [None]
